FAERS Safety Report 17474319 (Version 2)
Quarter: 2021Q2

REPORT INFORMATION
  Report Type: Report from Study
  Country: JP (occurrence: JP)
  Receive Date: 20200228
  Receipt Date: 20210601
  Transmission Date: 20210716
  Serious: Yes (Other)
  Sender: FDA-Public Use
  Company Number: JP-JNJFOC-20190736768

PATIENT
  Age: 52 Year
  Sex: Male
  Weight: 62 kg

DRUGS (25)
  1. STELARA [Suspect]
     Active Substance: USTEKINUMAB
     Route: 058
     Dates: start: 20180709, end: 20180709
  2. STELARA [Suspect]
     Active Substance: USTEKINUMAB
     Route: 058
     Dates: start: 20190126, end: 20190126
  3. STELARA [Suspect]
     Active Substance: USTEKINUMAB
     Route: 058
     Dates: start: 20201212, end: 20201212
  4. PENTASA [Concomitant]
     Active Substance: MESALAMINE
     Indication: CROHN^S DISEASE
     Route: 048
  5. STELARA [Suspect]
     Active Substance: USTEKINUMAB
     Route: 058
     Dates: start: 20190720, end: 20190720
  6. STELARA [Suspect]
     Active Substance: USTEKINUMAB
     Route: 058
     Dates: start: 20191109, end: 20191109
  7. STELARA [Suspect]
     Active Substance: USTEKINUMAB
     Route: 058
     Dates: start: 20200314, end: 20200314
  8. STELARA [Suspect]
     Active Substance: USTEKINUMAB
     Indication: CROHN^S DISEASE
     Route: 042
     Dates: start: 20180217, end: 20180217
  9. STELARA [Suspect]
     Active Substance: USTEKINUMAB
     Route: 058
     Dates: start: 20200613, end: 20200613
  10. STELARA [Suspect]
     Active Substance: USTEKINUMAB
     Route: 058
     Dates: start: 20210206, end: 20210206
  11. BIOFERMIN [Concomitant]
     Active Substance: DIETARY SUPPLEMENT\PROBIOTICS
     Indication: CROHN^S DISEASE
     Route: 048
  12. STELARA [Suspect]
     Active Substance: USTEKINUMAB
     Route: 058
     Dates: start: 20190914, end: 20190914
  13. ZENTACORT [Concomitant]
     Active Substance: BUDESONIDE
     Route: 048
     Dates: start: 20181014, end: 20181130
  14. STELARA [Suspect]
     Active Substance: USTEKINUMAB
     Route: 058
     Dates: start: 20180908, end: 20180908
  15. STELARA [Suspect]
     Active Substance: USTEKINUMAB
     Route: 058
     Dates: start: 20190518, end: 20190518
  16. POSTERISAN [Concomitant]
     Active Substance: LIDOCAINE
     Indication: CROHN^S DISEASE
     Dosage: MEDICINE FOR EXTERNAL USE?COLIBACILLUS VACCINE/HYDROCORTISONE
     Route: 065
     Dates: start: 20190107, end: 20190126
  17. STELARA [Suspect]
     Active Substance: USTEKINUMAB
     Route: 058
     Dates: start: 20190323, end: 20190323
  18. STELARA [Suspect]
     Active Substance: USTEKINUMAB
     Route: 058
     Dates: start: 20200822, end: 20200822
  19. ZENTACORT [Concomitant]
     Active Substance: BUDESONIDE
     Indication: CROHN^S DISEASE
     Route: 048
     Dates: start: 20180709, end: 20180902
  20. ZENTACORT [Concomitant]
     Active Substance: BUDESONIDE
     Route: 048
     Dates: start: 20181201, end: 20181207
  21. ZENTACORT [Concomitant]
     Active Substance: BUDESONIDE
     Route: 048
     Dates: start: 20190126
  22. STELARA [Suspect]
     Active Substance: USTEKINUMAB
     Route: 058
     Dates: start: 20180414, end: 20180414
  23. STELARA [Suspect]
     Active Substance: USTEKINUMAB
     Route: 058
     Dates: start: 20181110, end: 20181110
  24. STELARA [Suspect]
     Active Substance: USTEKINUMAB
     Route: 058
     Dates: start: 20201017, end: 20201017
  25. ZENTACORT [Concomitant]
     Active Substance: BUDESONIDE
     Route: 048
     Dates: start: 20180903, end: 20180909

REACTIONS (3)
  - Pyrexia [Recovered/Resolved]
  - Abscess [Recovered/Resolved]
  - Anal fissure [Recovered/Resolved]

NARRATIVE: CASE EVENT DATE: 20181221
